FAERS Safety Report 4462208-9 (Version None)
Quarter: 2004Q3

REPORT INFORMATION
  Report Type: 
  Country: None (occurrence: None)
  Receive Date: 20040929
  Receipt Date: 20040727
  Transmission Date: 20050211
  Serious: Yes (Disabling)
  Sender: FDA-Public Use
  Company Number: US-ROCHE-375978

PATIENT
  Age: 51 Year
  Sex: Female
  Weight: 46.7 kg

DRUGS (4)
  1. FUZEON [Suspect]
     Indication: HIV INFECTION
     Route: 058
     Dates: start: 20040723, end: 20040806
  2. ATAZANAVIR [Suspect]
     Indication: HIV INFECTION
     Dosage: GIVEN IN THE MORNING.
     Route: 048
     Dates: start: 20040724, end: 20040806
  3. ATAZANAVIR [Suspect]
     Dosage: GIVEN IN THE MORNING.
     Route: 048
     Dates: start: 20040813
  4. KALETRA [Concomitant]
     Indication: HIV INFECTION
     Dosage: GIVEN AM AND PM. STOPPED ON 06 AUGUST 2004 AND RESTARTED ON 13 AUGUST 2004.
     Route: 048
     Dates: start: 20030127

REACTIONS (10)
  - CHEST DISCOMFORT [None]
  - DIARRHOEA [None]
  - DIZZINESS [None]
  - FATIGUE [None]
  - HEADACHE [None]
  - HYPOAESTHESIA [None]
  - INJECTION SITE ERYTHEMA [None]
  - INJECTION SITE PAIN [None]
  - INJECTION SITE PRURITUS [None]
  - NAUSEA [None]
